FAERS Safety Report 5721715-9 (Version None)
Quarter: 2008Q2

REPORT INFORMATION
  Report Type: 
  Country: None (occurrence: None)
  Receive Date: 20080429
  Receipt Date: 20070406
  Transmission Date: 20081010
  Serious: No
  Sender: FDA-Public Use
  Company Number: US-ASTRAZENECA-2007UW06908

PATIENT
  Age: 63 Year
  Sex: Female
  Weight: 97.1 kg

DRUGS (10)
  1. NEXIUM [Suspect]
     Indication: GASTROOESOPHAGEAL REFLUX DISEASE
     Route: 048
     Dates: start: 20070301, end: 20070401
  2. LYRICA [Concomitant]
  3. FLONASE [Concomitant]
  4. ALBUTEROL [Concomitant]
  5. OXYGEN [Concomitant]
  6. AVANDIA [Concomitant]
  7. NITROGLYCERIN [Concomitant]
  8. ISORIDE [Concomitant]
  9. OXYGEN [Concomitant]
  10. XANAX [Concomitant]

REACTIONS (3)
  - DEHYDRATION [None]
  - MUSCLE SPASMS [None]
  - VOMITING [None]
